FAERS Safety Report 10683194 (Version 2)
Quarter: 2015Q1

REPORT INFORMATION
  Report Type: Report from Study
  Country: US (occurrence: US)
  Receive Date: 20141230
  Receipt Date: 20150105
  Transmission Date: 20150720
  Serious: Yes (Death, Hospitalization)
  Sender: FDA-Public Use
  Company Number: US-JNJFOC-20141218300

PATIENT
  Age: 72 Year
  Sex: Male
  Weight: 103 kg

DRUGS (6)
  1. LASIX [Concomitant]
     Active Substance: FUROSEMIDE
  2. CARVEDILOL. [Concomitant]
     Active Substance: CARVEDILOL
  3. IMBRUVICA [Suspect]
     Active Substance: IBRUTINIB
     Indication: CHRONIC LYMPHOCYTIC LEUKAEMIA
     Route: 048
     Dates: start: 201407, end: 20141218
  4. METOLAZONE. [Concomitant]
     Active Substance: METOLAZONE
  5. ALLOPURINOL. [Concomitant]
     Active Substance: ALLOPURINOL
  6. PROCHLORPERAZINE. [Concomitant]
     Active Substance: PROCHLORPERAZINE

REACTIONS (6)
  - Death [Fatal]
  - Vomiting [Unknown]
  - Pulmonary oedema [Not Recovered/Not Resolved]
  - Dyspnoea [Unknown]
  - Renal failure [Unknown]
  - Fluid overload [Unknown]

NARRATIVE: CASE EVENT DATE: 20141211
